FAERS Safety Report 5105988-1 (Version None)
Quarter: 2006Q3

REPORT INFORMATION
  Report Type: 
  Country: None (occurrence: None)
  Receive Date: 20060912
  Receipt Date: 20060830
  Transmission Date: 20061208
  Serious: Yes (Hospitalization)
  Sender: FDA-Public Use
  Company Number: 2006107033

PATIENT
  Age: 71 Year
  Sex: Female
  Weight: 82.5547 kg

DRUGS (2)
  1. CELEBREX [Suspect]
     Indication: PAIN
  2. BEXTRA [Suspect]
     Indication: PAIN

REACTIONS (2)
  - CHEST PAIN [None]
  - TRANSIENT ISCHAEMIC ATTACK [None]
